FAERS Safety Report 10660283 (Version 2)
Quarter: 2014Q4

REPORT INFORMATION
  Report Type: Report from Study
  Country: CZ (occurrence: CZ)
  Receive Date: 20141217
  Receipt Date: 20141217
  Transmission Date: 20150529
  Serious: Yes (Death, Hospitalization)
  Sender: FDA-Public Use
  Company Number: CZ-AMGEN-2014-2312

PATIENT
  Age: 82 Year
  Sex: Male
  Weight: 70 kg

DRUGS (17)
  1. ENAP [Concomitant]
     Active Substance: ENALAPRIL
     Indication: HYPERTENSION
     Route: 048
  2. PRESID [Concomitant]
     Indication: HYPERTENSION
     Route: 048
  3. DEXAMETHASONE. [Concomitant]
     Active Substance: DEXAMETHASONE
     Indication: PLASMA CELL MYELOMA
     Route: 048
     Dates: start: 20141002, end: 20141005
  4. FRAXIPARINE [Concomitant]
     Active Substance: NADROPARIN CALCIUM
     Indication: PROPHYLAXIS
     Route: 058
     Dates: start: 20141004, end: 20141007
  5. ZALDIAR [Concomitant]
     Active Substance: ACETAMINOPHEN\TRAMADOL HYDROCHLORIDE
     Indication: SPINAL PAIN
     Route: 048
     Dates: start: 20141002, end: 20141002
  6. KANAVIT [Concomitant]
     Indication: PROPHYLAXIS
     Route: 048
     Dates: start: 20141002, end: 20141003
  7. KANAVIT [Concomitant]
     Route: 048
     Dates: start: 20141006, end: 20141006
  8. GLUCOSA [Concomitant]
     Indication: PROPHYLAXIS
     Route: 042
     Dates: start: 20141002, end: 20141002
  9. CARFILZOMIB [Suspect]
     Active Substance: CARFILZOMIB
     Indication: PLASMA CELL MYELOMA
     Dosage: FREQ. TEXT: DAYS 1,2?
     Route: 042
     Dates: start: 20141020, end: 20141020
  10. PREDNISONE. [Suspect]
     Active Substance: PREDNISONE
  11. ZALDIAR [Concomitant]
     Active Substance: ACETAMINOPHEN\TRAMADOL HYDROCHLORIDE
     Route: 048
     Dates: start: 20141007
  12. MELPHALAN [Suspect]
     Active Substance: MELPHALAN
     Indication: PLASMA CELL MYELOMA
     Dosage: FREQ. TEXT: 1-4?
     Route: 048
     Dates: start: 20141021, end: 20141022
  13. TRALGIT [Concomitant]
     Active Substance: TRAMADOL
     Indication: SPINAL PAIN
     Route: 048
     Dates: start: 20141002, end: 20141007
  14. GLUCOSA [Concomitant]
     Route: 042
     Dates: start: 20141006, end: 20141006
  15. ALBUMIN [Concomitant]
     Active Substance: ALBUMIN (HUMAN)
     Indication: PROPHYLAXIS AGAINST DEHYDRATION
     Route: 042
     Dates: start: 20141002, end: 20141002
  16. PREDNISONE. [Suspect]
     Active Substance: PREDNISONE
     Indication: PLASMA CELL MYELOMA
     Dosage: FREQ. TEXT: 1-4?
     Route: 048
     Dates: start: 20141021, end: 20141022
  17. HELICID [Concomitant]
     Indication: PROPHYLAXIS
     Route: 048
     Dates: start: 20141002, end: 20141007

REACTIONS (1)
  - Tumour lysis syndrome [Fatal]

NARRATIVE: CASE EVENT DATE: 20141021
